FAERS Safety Report 14942548 (Version 1)
Quarter: 2018Q2

REPORT INFORMATION
  Report Type: Spontaneous
  Country: JP (occurrence: JP)
  Receive Date: 20180528
  Receipt Date: 20180528
  Transmission Date: 20180711
  Serious: Yes (Hospitalization, Other)
  Sender: FDA-Public Use
  Company Number: JP-ASTELLAS-2018JP009515

PATIENT
  Age: 43 Year
  Sex: Female

DRUGS (11)
  1. PREDNISOLONE. [Concomitant]
     Active Substance: PREDNISOLONE
     Indication: POLYMYOSITIS
     Route: 065
  2. METHYLPREDNISOLONE. [Concomitant]
     Active Substance: METHYLPREDNISOLONE
     Indication: POLYMYOSITIS
     Dosage: UNK UNK, UNKNOWN FREQ.
     Route: 065
  3. PROGRAF [Suspect]
     Active Substance: TACROLIMUS\TACROLIMUS ANHYDROUS
     Indication: INTERSTITIAL LUNG DISEASE
     Dosage: UNK UNK, UNKNOWN FREQ.
     Route: 065
  4. PROGRAF [Suspect]
     Active Substance: TACROLIMUS\TACROLIMUS ANHYDROUS
     Indication: POLYMYOSITIS
  5. METHYLPREDNISOLONE. [Concomitant]
     Active Substance: METHYLPREDNISOLONE
     Dosage: UNK UNK, UNKNOWN FREQ.
     Route: 065
  6. CYCLOPHOSPHAMIDE. [Concomitant]
     Active Substance: CYCLOPHOSPHAMIDE
     Indication: INTERSTITIAL LUNG DISEASE
     Route: 042
  7. PREDNISOLONE. [Concomitant]
     Active Substance: PREDNISOLONE
     Indication: INTERSTITIAL LUNG DISEASE
     Dosage: UNK UNK, UNKNOWN FREQ.
     Route: 065
  8. METHYLPREDNISOLONE. [Concomitant]
     Active Substance: METHYLPREDNISOLONE
     Indication: INTERSTITIAL LUNG DISEASE
     Dosage: UNK UNK, UNKNOWN FREQ.
     Route: 065
  9. HUMAN NORMAL IMMUNOGLOBULIN [Concomitant]
     Active Substance: HUMAN IMMUNOGLOBULIN G
     Indication: INTERSTITIAL LUNG DISEASE
     Dosage: UNK UNK, UNKNOWN FREQ.
     Route: 042
  10. HUMAN NORMAL IMMUNOGLOBULIN [Concomitant]
     Active Substance: HUMAN IMMUNOGLOBULIN G
     Indication: POLYMYOSITIS
     Dosage: UNK UNK, UNKNOWN FREQ.
     Route: 042
  11. CYCLOPHOSPHAMIDE. [Concomitant]
     Active Substance: CYCLOPHOSPHAMIDE
     Indication: POLYMYOSITIS

REACTIONS (4)
  - Posterior reversible encephalopathy syndrome [Unknown]
  - Thrombotic microangiopathy [Unknown]
  - Cerebral haemorrhage [Unknown]
  - Pneumonia cytomegaloviral [Unknown]
